FAERS Safety Report 24238542 (Version 1)
Quarter: 2024Q3

REPORT INFORMATION
  Report Type: Spontaneous
  Country: US (occurrence: US)
  Receive Date: 20240822
  Receipt Date: 20240822
  Transmission Date: 20241017
  Serious: Yes (Death)
  Sender: VIFOR
  Company Number: US-Vifor (International) Inc.-VIT-2024-07403

PATIENT
  Age: 52 Year
  Sex: Male
  Weight: 90.5 kg

DRUGS (1)
  1. MIRCERA [Suspect]
     Active Substance: METHOXY POLYETHYLENE GLYCOL-EPOETIN BETA
     Indication: Nephrogenic anaemia
     Route: 040
     Dates: start: 20240806, end: 20240806

REACTIONS (9)
  - Cardiac arrest [Fatal]
  - Agonal respiration [Fatal]
  - Hypotension [Fatal]
  - Dizziness [Fatal]
  - Cardiogenic shock [Fatal]
  - Brain injury [Fatal]
  - Pulseless electrical activity [Fatal]
  - Acute myocardial infarction [Fatal]
  - Ventricular tachycardia [Fatal]

NARRATIVE: CASE EVENT DATE: 20240806
